FAERS Safety Report 8773152 (Version 1)
Quarter: 2012Q4

REPORT INFORMATION
  Report Type: 
  Country: US (occurrence: US)
  Receive Date: 20120907
  Receipt Date: 20120907
  Transmission Date: 20130627
  Serious: Yes (Hospitalization)
  Sender: FDA-Public Use
  Company Number: US-ASTRAZENECA-2012SE65750

PATIENT
  Age: 73 Year
  Sex: Female

DRUGS (2)
  1. ARIMIDEX [Suspect]
     Route: 048
  2. UNSPECIFIED INGREDIENT [Suspect]
     Route: 065

REACTIONS (3)
  - Clostridium difficile infection [Unknown]
  - Bacterial infection [Unknown]
  - Knee arthroplasty [None]
